FAERS Safety Report 10532092 (Version 2)
Quarter: 2014Q4

REPORT INFORMATION
  Report Type: Report from Study
  Country: CA (occurrence: CA)
  Receive Date: 20141021
  Receipt Date: 20141021
  Transmission Date: 20150529
  Serious: Yes (Hospitalization)
  Sender: FDA-Public Use
  Company Number: CA-ABBVIE-14K-028-1251200-00

PATIENT
  Age: 36 Year
  Sex: Female
  Weight: 49.03 kg

DRUGS (2)
  1. 6-MP [Concomitant]
     Active Substance: MERCAPTOPURINE
     Indication: CROHN^S DISEASE
  2. HUMIRA [Suspect]
     Active Substance: ADALIMUMAB
     Indication: CROHN^S DISEASE
     Route: 058
     Dates: start: 20130903, end: 2014

REACTIONS (19)
  - Mobility decreased [Recovered/Resolved]
  - Psychotic disorder [Recovered/Resolved]
  - Insomnia [Recovered/Resolved]
  - Feeling abnormal [Recovered/Resolved]
  - Malaise [Unknown]
  - Presyncope [Unknown]
  - Headache [Recovered/Resolved]
  - Fistula [Unknown]
  - Drug ineffective [Not Recovered/Not Resolved]
  - Depressed level of consciousness [Recovered/Resolved]
  - Dizziness [Unknown]
  - Illusion [Not Recovered/Not Resolved]
  - Red blood cell count decreased [Unknown]
  - Thinking abnormal [Recovered/Resolved]
  - Communication disorder [Recovered/Resolved]
  - Lethargy [Recovered/Resolved]
  - Anorectal disorder [Recovering/Resolving]
  - Blood urea decreased [Unknown]
  - Paranoia [Unknown]

NARRATIVE: CASE EVENT DATE: 2014
